FAERS Safety Report 23011064 (Version 2)
Quarter: 2023Q4

REPORT INFORMATION
  Report Type: Spontaneous
  Country: US (occurrence: US)
  Receive Date: 20230929
  Receipt Date: 20231010
  Transmission Date: 20240110
  Serious: No
  Sender: FDA-Public Use
  Company Number: US-Calliditas-2023CAL01240

PATIENT
  Age: 50 Year
  Sex: Male
  Weight: 80.73 kg

DRUGS (2)
  1. TARPEYO [Suspect]
     Active Substance: BUDESONIDE
     Indication: IgA nephropathy
     Dosage: 16MG (4MG CAPSULES) ONCE DAILY
     Route: 048
     Dates: start: 20230126
  2. VALSARTAN [Concomitant]
     Active Substance: VALSARTAN

REACTIONS (5)
  - Hyperaesthesia teeth [Not Recovered/Not Resolved]
  - Acne [Not Recovered/Not Resolved]
  - Contusion [Recovering/Resolving]
  - Mood altered [Unknown]
  - Abdominal distension [Unknown]

NARRATIVE: CASE EVENT DATE: 20230501
